FAERS Safety Report 7499618-1 (Version None)
Quarter: 2011Q2

REPORT INFORMATION
  Report Type: 
  Country: None (occurrence: None)
  Receive Date: 20110524
  Receipt Date: 20110516
  Transmission Date: 20111010
  Serious: Yes (Other)
  Sender: FDA-Public Use
  Company Number: US-JNJFOC-20110508565

PATIENT
  Age: 71 Year
  Sex: Female
  Weight: 79.38 kg

DRUGS (6)
  1. PEPCID COMPLETE [Suspect]
     Indication: DYSPEPSIA
     Route: 048
     Dates: start: 20110502, end: 20110516
  2. TOPROL-XL [Concomitant]
     Indication: HYPERTENSION
     Dates: start: 20090101
  3. PEPCID COMPLETE [Suspect]
     Route: 048
  4. LIPITOR [Concomitant]
     Indication: BLOOD CHOLESTEROL INCREASED
     Dates: start: 20000101
  5. LISINOPRIL [Concomitant]
     Indication: HYPERTENSION
     Dates: start: 19880101
  6. ADVAIR DISKUS 100/50 [Concomitant]
     Indication: ASTHMA
     Dates: start: 19980101

REACTIONS (2)
  - HAEMORRHAGE [None]
  - PRODUCT QUALITY ISSUE [None]
